FAERS Safety Report 4816836-9 (Version None)
Quarter: 2005Q4

REPORT INFORMATION
  Report Type: 
  Country: None (occurrence: None)
  Receive Date: 20051028
  Receipt Date: 20051024
  Transmission Date: 20060501
  Serious: Yes (Other)
  Sender: FDA-Public Use
  Company Number: 200513030BCC

PATIENT
  Age: 38 Year
  Sex: Female
  Weight: 81.6475 kg

DRUGS (2)
  1. ALEVE (CAPLET) [Suspect]
     Indication: DYSMENORRHOEA
     Dosage: 440 MG, ONCE, ORAL
     Route: 048
     Dates: start: 20050719
  2. ALEVE (CAPLET) [Suspect]
     Indication: MIGRAINE
     Dosage: 440 MG, ONCE, ORAL
     Route: 048
     Dates: start: 20050719

REACTIONS (12)
  - DIFFICULTY IN WALKING [None]
  - EYELID OEDEMA [None]
  - JOINT RANGE OF MOTION DECREASED [None]
  - JOINT SWELLING [None]
  - OEDEMA PERIPHERAL [None]
  - PAIN IN EXTREMITY [None]
  - PRURITUS [None]
  - SCRATCH [None]
  - SKIN HAEMORRHAGE [None]
  - SUNBURN [None]
  - SWELLING FACE [None]
  - URTICARIA GENERALISED [None]
